FAERS Safety Report 21207227 (Version 1)
Quarter: 2022Q3

REPORT INFORMATION
  Report Type: Spontaneous
  Country: CA (occurrence: CA)
  Receive Date: 20220812
  Receipt Date: 20220812
  Transmission Date: 20221027
  Serious: Yes (Death, Hospitalization, Other)
  Sender: FDA-Public Use
  Company Number: CA-HOSPIRA-2462615

PATIENT
  Age: 11 Year
  Sex: Male

DRUGS (6)
  1. METHOTREXATE SODIUM [Suspect]
     Active Substance: METHOTREXATE SODIUM
     Indication: Acute lymphocytic leukaemia
     Dosage: 20 MG
     Route: 037
  2. LEUCOVORIN [Suspect]
     Active Substance: LEUCOVORIN
     Indication: Acute lymphocytic leukaemia
     Dosage: 50 MG IN SALINE
     Route: 037
  3. LEUCOVORIN [Suspect]
     Active Substance: LEUCOVORIN
     Dosage: 100 MG, EVERY 4 HRS
     Route: 042
  4. LEUCOVORIN [Suspect]
     Active Substance: LEUCOVORIN
     Dosage: TWO MORE DOSES (50 MG EACH DOSE)
     Route: 037
  5. CYTARABINE [Concomitant]
     Active Substance: CYTARABINE
     Indication: Acute lymphocytic leukaemia
     Dosage: 36 MG
     Route: 037
  6. HYDROCORTISONE [Concomitant]
     Active Substance: HYDROCORTISONE
     Indication: Acute lymphocytic leukaemia
     Dosage: 24 MG
     Route: 037

REACTIONS (4)
  - Incorrect dose administered [Fatal]
  - Overdose [Fatal]
  - Neurotoxicity [Fatal]
  - Brain death [Fatal]
